FAERS Safety Report 18152335 (Version 9)
Quarter: 2021Q2

REPORT INFORMATION
  Report Type: Report from Study
  Country: AU (occurrence: AU)
  Receive Date: 20200814
  Receipt Date: 20210607
  Transmission Date: 20210717
  Serious: Yes (Hospitalization)
  Sender: FDA-Public Use
  Company Number: AU-EISAI MEDICAL RESEARCH-EC-2020-078942

PATIENT
  Age: 83 Year
  Sex: Female
  Weight: 82 kg

DRUGS (12)
  1. PEMBROLIZUMAB. [Suspect]
     Active Substance: PEMBROLIZUMAB
     Route: 041
     Dates: start: 20200825, end: 20201116
  2. FUROSEMIDE. [Concomitant]
     Active Substance: FUROSEMIDE
     Dates: start: 201701
  3. IRBESARTAN. [Concomitant]
     Active Substance: IRBESARTAN
     Dates: start: 202001, end: 20210127
  4. PANADOL [Concomitant]
     Active Substance: ACETAMINOPHEN
     Dates: start: 20200807
  5. CENOVIS VITAMIN D3 [Concomitant]
     Dates: start: 202101
  6. PEMBROLIZUMAB. [Suspect]
     Active Substance: PEMBROLIZUMAB
     Indication: ENDOMETRIAL CANCER
     Route: 041
     Dates: start: 20200730, end: 20200730
  7. LEVOTHYROXINE SODIUM. [Concomitant]
     Active Substance: LEVOTHYROXINE SODIUM
     Dates: start: 202001, end: 20200811
  8. PANTOPRAZOLE [Concomitant]
     Active Substance: PANTOPRAZOLE
     Dates: start: 201701
  9. LATANOPROST. [Concomitant]
     Active Substance: LATANOPROST
     Dates: start: 201901
  10. LENVATINIB [Suspect]
     Active Substance: LENVATINIB
     Indication: ENDOMETRIAL CANCER
     Route: 048
     Dates: start: 20200730, end: 20200811
  11. PEMBROLIZUMAB. [Suspect]
     Active Substance: PEMBROLIZUMAB
     Route: 041
     Dates: start: 20201207, end: 20201207
  12. NUTRA LIFE BIOACTIVE CURCUMIN [Concomitant]
     Dates: start: 202101

REACTIONS (1)
  - Hypertensive crisis [Recovered/Resolved]

NARRATIVE: CASE EVENT DATE: 20200810
